FAERS Safety Report 5486806-9 (Version None)
Quarter: 2007Q4

REPORT INFORMATION
  Report Type: 
  Country: None (occurrence: None)
  Receive Date: 20071016
  Receipt Date: 20071010
  Transmission Date: 20080405
  Serious: Yes (Other)
  Sender: FDA-Public Use
  Company Number: MX-AVENTIS-200719412GDDC

PATIENT
  Age: 48 Year
  Sex: Female

DRUGS (3)
  1. ARAVA [Suspect]
     Route: 048
  2. HYDROXYCHLOROQUINE SULFATE [Concomitant]
  3. ETORICOXIB [Concomitant]

REACTIONS (1)
  - HEPATITIS ACUTE [None]
